FAERS Safety Report 8772487 (Version 4)
Quarter: 2013Q1

REPORT INFORMATION
  Report Type: Spontaneous
  Country: US (occurrence: US)
  Receive Date: 20120905
  Receipt Date: 20130111
  Transmission Date: 20140127
  Serious: No
  Sender: FDA-Public Use
  Company Number: US-009507513-1209USA001350

PATIENT
  Sex: Male
  Weight: 61.22 kg

DRUGS (3)
  1. NASONEX [Suspect]
     Indication: ASTHMA
     Dosage: 2 DF, QD
     Route: 045
     Dates: start: 201106, end: 201201
  2. NASONEX [Suspect]
     Indication: RHINITIS ALLERGIC
     Dosage: 2 DF, QD
     Route: 045
     Dates: start: 201204, end: 201205
  3. ADVAIR [Concomitant]

REACTIONS (5)
  - Vision blurred [Recovering/Resolving]
  - Headache [Recovering/Resolving]
  - Depressed mood [Recovering/Resolving]
  - Nasal septal operation [Recovering/Resolving]
  - Vision blurred [Recovered/Resolved]
